FAERS Safety Report 22154511 (Version 2)
Quarter: 2023Q2

REPORT INFORMATION
  Report Type: Report from Study
  Country: MY (occurrence: None)
  Receive Date: 20230330
  Receipt Date: 20230414
  Transmission Date: 20230721
  Serious: Yes (Hospitalization)
  Sender: FDA-Public Use
  Company Number: MY-Merck Healthcare KGaA-9392702

PATIENT
  Age: 3 Year
  Sex: Male
  Weight: 25 kg

DRUGS (3)
  1. SAIZEN [Suspect]
     Active Substance: SOMATROPIN
     Indication: Prader-Willi syndrome
     Route: 058
  2. SAIZEN [Suspect]
     Active Substance: SOMATROPIN
     Indication: Growth hormone deficiency
  3. SAIZEN [Suspect]
     Active Substance: SOMATROPIN
     Indication: Growth failure

REACTIONS (1)
  - Influenza [Recovered/Resolved]
